FAERS Safety Report 18350251 (Version 4)
Quarter: 2021Q1

REPORT INFORMATION
  Report Type: Report from Study
  Country: FR (occurrence: FR)
  Receive Date: 20201006
  Receipt Date: 20210114
  Transmission Date: 20210419
  Serious: Yes (Other)
  Sender: FDA-Public Use
  Company Number: FR-GLAXOSMITHKLINE-FR2020EME192068

PATIENT
  Sex: Female
  Weight: 64 kg

DRUGS (8)
  1. PROCORALAN [Concomitant]
     Active Substance: IVABRADINE
  2. TRIACTIN [Concomitant]
  3. FLIXOTIDE [Concomitant]
     Active Substance: FLUTICASONE PROPIONATE
  4. SEREVENT DISKUS [Concomitant]
     Active Substance: SALMETEROL XINAFOATE
  5. BELANTAMAB MAFODOTIN. [Suspect]
     Active Substance: BELANTAMAB MAFODOTIN
     Indication: PLASMA CELL MYELOMA
     Dosage: 2.5 MG/KG
     Dates: start: 20200525
  6. VENTOLIN [Concomitant]
     Active Substance: ALBUTEROL SULFATE
  7. BELANTAMAB MAFODOTIN. [Suspect]
     Active Substance: BELANTAMAB MAFODOTIN
     Dosage: 2 MG/KG
  8. CARDENSIEL [Concomitant]
     Active Substance: BISOPROLOL FUMARATE

REACTIONS (3)
  - Acute kidney injury [Unknown]
  - Product prescribing error [Unknown]
  - Thrombocytopenia [Unknown]
